FAERS Safety Report 7474933-6 (Version None)
Quarter: 2011Q2

REPORT INFORMATION
  Report Type: 
  Country: None (occurrence: None)
  Receive Date: 20110512
  Receipt Date: 20100304
  Transmission Date: 20111010
  Serious: Yes (Death, Other)
  Sender: FDA-Public Use
  Company Number: US-BAYER-201015584NA

PATIENT
  Age: 45 Year
  Sex: Female
  Weight: 81.633 kg

DRUGS (16)
  1. ASPIRIN [Concomitant]
     Dosage: 325 MG, QD
     Route: 048
  2. FORANE [Concomitant]
     Dosage: INHALANT
     Dates: start: 20001005
  3. TRASYLOL [Suspect]
     Indication: CARDIAC OPERATION
     Dosage: UNK
     Dates: start: 20001005
  4. ATENOLOL [Concomitant]
     Dosage: 25 MG, QD
     Route: 048
  5. NITROGLYCERIN [Concomitant]
     Route: 060
  6. SUFENTANIL [Concomitant]
     Dosage: 0.75
     Route: 042
     Dates: start: 20001005
  7. IMDUR [Concomitant]
     Dosage: 30 MG, QD
     Route: 048
  8. AMICAR [Concomitant]
     Dosage: 200 ML, UNK
     Dates: start: 20001005
  9. PAVULON [Concomitant]
     Dosage: 2 MG, UNK
     Route: 042
     Dates: start: 20001005
  10. TRASYLOL [Suspect]
     Indication: CORONARY ARTERY BYPASS
  11. PLAVIX [Concomitant]
     Dosage: 75 MG, QD
     Route: 048
  12. VERSED [Concomitant]
     Dosage: 4 MG, UNK
     Route: 042
     Dates: start: 20001005
  13. HEPARIN [Concomitant]
     Dosage: 27,5000 UNITS
     Route: 042
     Dates: start: 20001005
  14. LIDOCAINE [Concomitant]
     Dosage: 150 MG, UNK
     Route: 042
  15. DARVOCET-N 50 [Concomitant]
     Dosage: 100 MG, Q4HR, PRN
     Route: 048
  16. PROTAMINE SULFATE [Concomitant]
     Dosage: 400 MG, UNK
     Route: 042
     Dates: start: 20001005

REACTIONS (7)
  - INJURY [None]
  - EMOTIONAL DISTRESS [None]
  - DEATH [None]
  - RENAL FAILURE [None]
  - PAIN [None]
  - ANXIETY [None]
  - RENAL FAILURE ACUTE [None]
